FAERS Safety Report 20736396 (Version 1)
Quarter: 2022Q2

REPORT INFORMATION
  Report Type: Spontaneous
  Country: US (occurrence: US)
  Receive Date: 20220421
  Receipt Date: 20220421
  Transmission Date: 20220721
  Serious: Yes (Hospitalization, Other)
  Sender: FDA-Public Use
  Company Number: US-Accord-260953

PATIENT
  Age: 68 Year
  Sex: Female

DRUGS (6)
  1. METHOTREXATE [Suspect]
     Active Substance: METHOTREXATE
     Indication: Rheumatoid arthritis
     Route: 048
  2. ACETAMINOPHEN [Concomitant]
     Active Substance: ACETAMINOPHEN
     Route: 048
  3. OMEPRAZOLE [Concomitant]
     Active Substance: OMEPRAZOLE
  4. PREDNISONE [Concomitant]
     Active Substance: PREDNISONE
  5. MONTELUKAST [Concomitant]
     Active Substance: MONTELUKAST SODIUM
  6. IBUPROFEN [Concomitant]
     Active Substance: IBUPROFEN
     Dosage: 600 MG EVERY EIGHT HOURS AS NEEDED

REACTIONS (3)
  - Pneumocystis jirovecii pneumonia [Unknown]
  - Leukocytosis [Unknown]
  - Lymphopenia [Unknown]
